FAERS Safety Report 4837669-3 (Version None)
Quarter: 2005Q4

REPORT INFORMATION
  Report Type: 
  Country: None (occurrence: None)
  Receive Date: 20051128
  Receipt Date: 20051004
  Transmission Date: 20060501
  Serious: Yes (Hospitalization, Other)
  Sender: FDA-Public Use
  Company Number: US-MERCK-0510USA02227

PATIENT
  Age: 73 Year
  Sex: Male
  Weight: 68 kg

DRUGS (21)
  1. VIOXX [Suspect]
     Indication: ARTHRITIS
     Route: 048
     Dates: start: 20020720, end: 20030423
  2. ALPRAZOLAM [Concomitant]
     Route: 065
  3. LOMOTIL [Concomitant]
     Route: 065
  4. NITROSTAT [Concomitant]
     Route: 065
  5. ZOCOR [Concomitant]
     Route: 065
  6. NASACORT [Concomitant]
     Route: 065
  7. LORCET-HD [Concomitant]
     Route: 065
  8. HUMIBID L.A. [Concomitant]
     Route: 065
  9. PLETAL [Concomitant]
     Route: 065
  10. ASPIRIN [Concomitant]
     Route: 065
  11. CILOSTAZOL [Concomitant]
     Route: 065
  12. CLOPIDOGREL BISULFATE [Concomitant]
     Route: 065
  13. PLAVIX [Concomitant]
     Route: 065
  14. LEXAPRO [Concomitant]
     Route: 065
  15. TYLENOL [Concomitant]
     Route: 065
  16. LORTAB [Concomitant]
     Route: 065
  17. BECONASE [Concomitant]
     Route: 065
  18. MILK OF MAGNESIA TAB [Concomitant]
     Route: 065
  19. XANAX [Concomitant]
     Route: 065
  20. ATROPINE SULFATE [Concomitant]
     Route: 065
  21. MYLANTA + MYLANTA DS [Concomitant]
     Route: 065

REACTIONS (18)
  - ABDOMINAL PAIN [None]
  - AORTIC ANEURYSM [None]
  - ARTERIOSCLEROSIS OBLITERANS [None]
  - CEREBROVASCULAR ACCIDENT [None]
  - DEHYDRATION [None]
  - DEPRESSION [None]
  - DIARRHOEA [None]
  - DIZZINESS POSTURAL [None]
  - GASTRITIS [None]
  - HAEMORRHOIDS [None]
  - HYPERTENSION [None]
  - INTRACRANIAL ANEURYSM [None]
  - LERICHE SYNDROME [None]
  - NAUSEA [None]
  - OCCULT BLOOD POSITIVE [None]
  - SKIN INDURATION [None]
  - TRANSIENT ISCHAEMIC ATTACK [None]
  - WEIGHT DECREASED [None]
